FAERS Safety Report 7368152-1 (Version None)
Quarter: 2011Q1

REPORT INFORMATION
  Report Type: 
  Country: None (occurrence: None)
  Receive Date: 20110323
  Receipt Date: 20110315
  Transmission Date: 20110831
  Serious: Yes (Other)
  Sender: FDA-Public Use
  Company Number: US-PFIZER INC-2011056597

PATIENT
  Sex: Female
  Weight: 74.38 kg

DRUGS (4)
  1. EFFEXOR XR [Concomitant]
     Indication: DEPRESSION
     Dosage: UNK
  2. LYRICA [Suspect]
     Indication: FIBROMYALGIA
     Dosage: UNK
     Route: 048
     Dates: start: 20080101, end: 20090101
  3. CORTISONE [Concomitant]
     Dosage: UNK
  4. SEROQUEL [Concomitant]
     Indication: INSOMNIA
     Dosage: UNK

REACTIONS (1)
  - VISION BLURRED [None]
